FAERS Safety Report 21028262 (Version 1)
Quarter: 2022Q2

REPORT INFORMATION
  Report Type: Spontaneous
  Country: NL (occurrence: NL)
  Receive Date: 20220630
  Receipt Date: 20220630
  Transmission Date: 20220721
  Serious: Yes (Hospitalization)
  Sender: FDA-Public Use
  Company Number: NL-SA-2022SA254159

PATIENT
  Age: 21 Year
  Sex: Female

DRUGS (3)
  1. OXALIPLATIN [Suspect]
     Active Substance: OXALIPLATIN
     Indication: Prophylactic chemotherapy
     Dosage: EIGHT COURSES OF REGIMEN
  2. CAPECITABINE [Suspect]
     Active Substance: CAPECITABINE
     Indication: Prophylactic chemotherapy
     Dosage: EIGHT COURSES OF REGIMEN
  3. GADOXETATE SODIUM [Concomitant]
     Indication: Hepatic cancer
     Dosage: UNK

REACTIONS (1)
  - Focal nodular hyperplasia [Recovered/Resolved]
